FAERS Safety Report 17678339 (Version 1)
Quarter: 2020Q2

REPORT INFORMATION
  Report Type: Spontaneous
  Country: CN (occurrence: CN)
  Receive Date: 20200417
  Receipt Date: 20200417
  Transmission Date: 20200714
  Serious: Yes (Other)
  Sender: FDA-Public Use
  Company Number: CN-ROCHE-2583053

PATIENT
  Age: 57 Year
  Sex: Male

DRUGS (10)
  1. OXALIPLATIN. [Concomitant]
     Active Substance: OXALIPLATIN
     Route: 065
     Dates: start: 20180601
  2. OXALIPLATIN. [Concomitant]
     Active Substance: OXALIPLATIN
     Route: 065
     Dates: start: 20181201
  3. AVASTIN [Suspect]
     Active Substance: BEVACIZUMAB
     Route: 065
     Dates: start: 20190822
  4. IRINOTECAN [Concomitant]
     Active Substance: IRINOTECAN
     Indication: GASTROINTESTINAL CARCINOMA
     Route: 065
     Dates: start: 20181201
  5. XELODA [Suspect]
     Active Substance: CAPECITABINE
     Indication: GASTROINTESTINAL CARCINOMA
     Route: 048
     Dates: start: 20180101
  6. TEGAFUR,GIMERACIL AND OTERACIL POTASSIUM [Concomitant]
     Active Substance: GIMERACIL\OTERACIL\TEGAFUR
     Indication: GASTROINTESTINAL CARCINOMA
     Route: 065
     Dates: start: 20180601
  7. OXALIPLATIN. [Concomitant]
     Active Substance: OXALIPLATIN
     Indication: GASTROINTESTINAL CARCINOMA
     Route: 065
     Dates: start: 20180101
  8. AVASTIN [Suspect]
     Active Substance: BEVACIZUMAB
     Indication: GASTROINTESTINAL CARCINOMA
     Route: 065
     Dates: start: 20181201
  9. TEGAFUR,GIMERACIL AND OTERACIL POTASSIUM [Concomitant]
     Active Substance: GIMERACIL\OTERACIL\TEGAFUR
     Route: 048
  10. TEGAFUR,GIMERACIL AND OTERACIL POTASSIUM [Concomitant]
     Active Substance: GIMERACIL\OTERACIL\TEGAFUR
     Route: 048
     Dates: start: 20190701

REACTIONS (2)
  - Bone marrow failure [Unknown]
  - Palmar-plantar erythrodysaesthesia syndrome [Unknown]

NARRATIVE: CASE EVENT DATE: 2018
